FAERS Safety Report 18226283 (Version 1)
Quarter: 2020Q3

REPORT INFORMATION
  Report Type: Spontaneous
  Country: US (occurrence: US)
  Receive Date: 20200902
  Receipt Date: 20200902
  Transmission Date: 20201103
  Serious: Yes (Other)
  Sender: FDA-Public Use
  Company Number: None

PATIENT
  Age: 54 Year
  Sex: Female
  Weight: 70.65 kg

DRUGS (15)
  1. ZINC. [Concomitant]
     Active Substance: ZINC
  2. FEMARA [Concomitant]
     Active Substance: LETROZOLE
  3. VITAMIN E COMPLEX [Concomitant]
  4. LOMOTIL [Concomitant]
     Active Substance: ATROPINE SULFATE\DIPHENOXYLATE HYDROCHLORIDE
  5. VITAMIN D3 [Concomitant]
     Active Substance: CHOLECALCIFEROL
  6. VITAMIN B6 [Concomitant]
     Active Substance: PYRIDOXINE HYDROCHLORIDE
  7. VERZENIO [Suspect]
     Active Substance: ABEMACICLIB
     Indication: BREAST CANCER
     Route: 048
     Dates: start: 20200717
  8. KRILL OIL [Concomitant]
     Active Substance: DIETARY SUPPLEMENT\KRILL OIL
  9. CURCUMIN [Concomitant]
     Active Substance: CURCUMIN
  10. ATORVASTATIN [Concomitant]
     Active Substance: ATORVASTATIN
  11. ATROPINE. [Concomitant]
     Active Substance: ATROPINE
  12. COZAAR [Concomitant]
     Active Substance: LOSARTAN POTASSIUM
  13. HYDROCHLOROTHIAZIDE. [Concomitant]
     Active Substance: HYDROCHLOROTHIAZIDE
  14. OMEPRAZOLE. [Concomitant]
     Active Substance: OMEPRAZOLE
  15. VITAMIN B12?FOLIC ACID [Concomitant]

REACTIONS (3)
  - Gastrooesophageal reflux disease [None]
  - Diarrhoea [None]
  - Nausea [None]

NARRATIVE: CASE EVENT DATE: 20200902
